FAERS Safety Report 8601206-8 (Version None)
Quarter: 2012Q3

REPORT INFORMATION
  Report Type: 
  Country: None (occurrence: None)
  Receive Date: 20120806
  Receipt Date: 20120806
  Transmission Date: 20120928
  Serious: Yes (Disabling, Other)
  Sender: FDA-Public Use
  Company Number: None

PATIENT
  Age: 73 Year
  Sex: Female
  Weight: 71.2147 kg

DRUGS (2)
  1. POLYETHYLENE GLYCOL [Suspect]
     Indication: BLEPHARITIS
     Dosage: 1-2 DROPS DAILY
     Dates: start: 20120625, end: 20120714
  2. POLYETHYLENE GLYCOL [Suspect]
     Indication: DRY EYE
     Dosage: 1-2 DROPS DAILY
     Dates: start: 20120625, end: 20120714

REACTIONS (4)
  - EYE PAIN [None]
  - DRUG EFFECT DECREASED [None]
  - OCULAR HYPERAEMIA [None]
  - DISCOMFORT [None]
